FAERS Safety Report 4831874-8 (Version None)
Quarter: 2005Q4

REPORT INFORMATION
  Report Type: 
  Country: None (occurrence: None)
  Receive Date: 20051118
  Receipt Date: 20050920
  Transmission Date: 20060501
  Serious: Yes (Hospitalization)
  Sender: FDA-Public Use
  Company Number: FI-ROCHE-418530

PATIENT
  Age: 36 Year
  Sex: Female

DRUGS (3)
  1. ROACCUTAN [Suspect]
     Indication: ACNE
     Route: 048
     Dates: start: 20050819, end: 20050919
  2. ROACCUTAN [Suspect]
     Route: 048
     Dates: start: 20050930
  3. MELIANE [Suspect]
     Indication: CONTRACEPTION
     Dosage: REPORTED AS 20/75MG AND ADMINISTERED ONCE PER DAY FOR 21 DAYS OF EACH MENSTRUAL CYCLE.
     Route: 048

REACTIONS (1)
  - THROMBOPHLEBITIS [None]
